FAERS Safety Report 5753220-8 (Version None)
Quarter: 2008Q2

REPORT INFORMATION
  Report Type: 
  Country: None (occurrence: None)
  Receive Date: 20080527
  Receipt Date: 20080509
  Transmission Date: 20081010
  Serious: Yes (Life-Threatening, Hospitalization)
  Sender: FDA-Public Use
  Company Number: 08P-009-0451215-00

PATIENT
  Age: 12 Week
  Sex: Male

DRUGS (2)
  1. SYNAGIS INJECTION    (PALIVIZUMAB) [Suspect]
     Indication: ANTIVIRAL PROPHYLAXIS
     Dosage: 25 MG
     Route: 030
     Dates: start: 20080411, end: 20080411
  2. SYNAGIS INJECTION    (PALIVIZUMAB) [Suspect]
     Indication: PREMATURE BABY
     Dosage: 25 MG
     Route: 030
     Dates: start: 20080411, end: 20080411

REACTIONS (1)
  - RESPIRATORY SYNCYTIAL VIRUS BRONCHIOLITIS [None]
